FAERS Safety Report 15675111 (Version 2)
Quarter: 2018Q4

REPORT INFORMATION
  Report Type: Spontaneous
  Country: US (occurrence: US)
  Receive Date: 20181130
  Receipt Date: 20181214
  Transmission Date: 20190205
  Serious: No
  Sender: FDA-Public Use
  Company Number: US-PFIZER INC-2018346293

PATIENT
  Age: 53 Year
  Sex: Female

DRUGS (2)
  1. RESTASIS [Concomitant]
     Active Substance: CYCLOSPORINE
     Dosage: UNK
  2. XELJANZ XR [Suspect]
     Active Substance: TOFACITINIB CITRATE
     Indication: PAIN
     Dosage: 11 MG, 1X/DAY

REACTIONS (3)
  - Impaired healing [Unknown]
  - Iron deficiency anaemia [Not Recovered/Not Resolved]
  - Drug ineffective for unapproved indication [Unknown]
